FAERS Safety Report 5871243-5 (Version None)
Quarter: 2008Q3

REPORT INFORMATION
  Report Type: 
  Country: None (occurrence: None)
  Receive Date: 20080903
  Receipt Date: 20080903
  Transmission Date: 20090109
  Serious: Yes (Life-Threatening, Disabling)
  Sender: FDA-Public Use
  Company Number: None

PATIENT
  Sex: Male
  Weight: 68 kg

DRUGS (4)
  1. MORPHINE SULFATE [Suspect]
     Indication: ARTHRALGIA
     Dosage: 100MG/100 ML 5 ML/HR IV DRIP
     Route: 041
     Dates: start: 20080826, end: 20080828
  2. MORPHINE SULFATE [Suspect]
     Indication: BURSITIS INFECTIVE
     Dosage: 100MG/100 ML 5 ML/HR IV DRIP
     Route: 041
     Dates: start: 20080826, end: 20080828
  3. MORPHINE SULFATE [Suspect]
     Indication: STAPHYLOCOCCAL INFECTION
     Dosage: 100MG/100 ML 5 ML/HR IV DRIP
     Route: 041
     Dates: start: 20080826, end: 20080828
  4. 0.9% NORMAL SALINE 100 ML HOSPIRA [Suspect]

REACTIONS (4)
  - CARDIO-RESPIRATORY ARREST [None]
  - INCORRECT DRUG ADMINISTRATION RATE [None]
  - MEDICATION ERROR [None]
  - UNRESPONSIVE TO STIMULI [None]
